FAERS Safety Report 23271280 (Version 6)
Quarter: 2024Q3

REPORT INFORMATION
  Report Type: Spontaneous
  Country: US (occurrence: US)
  Receive Date: 20231207
  Receipt Date: 20240702
  Transmission Date: 20241017
  Serious: Yes (Other)
  Sender: REGENERON
  Company Number: US-REGENERON PHARMACEUTICALS, INC.-2023-147626

PATIENT
  Sex: Male

DRUGS (39)
  1. EYLEA [Suspect]
     Active Substance: AFLIBERCEPT
     Indication: Neovascular age-related macular degeneration
     Dosage: 2 MG, EVERY MONTH INTO LEFT EYE (STRENGTH: 2MG/0.05ML, FORMULATION: PFS GERRESHEIMER)
     Dates: start: 20191226, end: 20191226
  2. EYLEA [Suspect]
     Active Substance: AFLIBERCEPT
     Indication: Choroidal neovascularisation
     Dosage: 2 MG, EVERY MONTH INTO LEFT EYE (STRENGTH: 2MG/0.05ML, FORMULATION: PFS GERRESHEIMER)
     Dates: start: 20200129, end: 20200129
  3. EYLEA [Suspect]
     Active Substance: AFLIBERCEPT
     Dosage: 2 MG, EVERY MONTH INTO LEFT EYE (STRENGTH: 2MG/0.05ML, FORMULATION: PFS GERRESHEIMER)
     Dates: start: 20200311, end: 20200311
  4. EYLEA [Suspect]
     Active Substance: AFLIBERCEPT
     Dosage: 2 MG, EVERY 7 WEEKS INTO LEFT EYE (STRENGTH: 2MG/0.05ML, FORMULATION: PFS GERRESHEIMER)
     Dates: start: 20200429, end: 20200429
  5. EYLEA [Suspect]
     Active Substance: AFLIBERCEPT
     Dosage: 2 MG, EVERY 8 WEEKS INTO LEFT EYE (STRENGTH: 2MG/0.05ML, FORMULATION: PFS GERRESHEIMER)
     Dates: start: 20200624, end: 20200624
  6. EYLEA [Suspect]
     Active Substance: AFLIBERCEPT
     Dosage: 2 MG, EVERY 10 WEEKS INTO LEFT EYE (STRENGTH: 2MG/0.05ML, FORMULATION: PFS GERRESHEIMER)
     Dates: start: 20200902, end: 20200902
  7. EYLEA [Suspect]
     Active Substance: AFLIBERCEPT
     Dosage: 2 MG, EVERY 12 WEEKS INTO LEFT EYE (STRENGTH: 2MG/0.05ML, FORMULATION: PFS GERRESHEIMER)
     Dates: start: 20201202, end: 20201202
  8. EYLEA [Suspect]
     Active Substance: AFLIBERCEPT
     Dosage: 2 MG, EVERY 12 WEEKS INTO LEFT EYE (STRENGTH: 2MG/0.05ML, FORMULATION: PFS GERRESHEIMER)
     Dates: start: 20210224, end: 20210224
  9. EYLEA [Suspect]
     Active Substance: AFLIBERCEPT
     Dosage: 2 MG, EVERY 12 WEEKS INTO LEFT EYE (STRENGTH: 2MG/0.05ML, FORMULATION: PFS GERRESHEIMER)
     Dates: start: 20210519, end: 20210519
  10. EYLEA [Suspect]
     Active Substance: AFLIBERCEPT
     Dosage: 2 MG, EVERY 10 WEEKS INTO LEFT EYE (STRENGTH: 2MG/0.05ML, FORMULATION: PFS GERRESHEIMER)
     Dates: start: 20210728, end: 20210728
  11. EYLEA [Suspect]
     Active Substance: AFLIBERCEPT
     Dosage: 2 MG, EVERY 10 WEEKS INTO LEFT EYE (STRENGTH: 2MG/0.05ML, FORMULATION: PFS GERRESHEIMER)
     Dates: start: 20211004, end: 20211004
  12. EYLEA [Suspect]
     Active Substance: AFLIBERCEPT
     Dosage: 2 MG, EVERY 12 WEEKS INTO LEFT EYE (STRENGTH: 2MG/0.05ML, FORMULATION: PFS GERRESHEIMER)
     Dates: start: 20211227, end: 20211227
  13. EYLEA [Suspect]
     Active Substance: AFLIBERCEPT
     Dosage: 2 MG, EVERY 12 WEEKS INTO LEFT EYE (STRENGTH: 2MG/0.05ML, FORMULATION: PFS GERRESHEIMER)
     Dates: start: 20220321, end: 20220321
  14. EYLEA [Suspect]
     Active Substance: AFLIBERCEPT
     Dosage: 2 MG, EVERY 12 WEEKS INTO LEFT EYE (STRENGTH: 2MG/0.05ML, FORMULATION: PFS GERRESHEIMER)
     Dates: start: 20220613, end: 20220613
  15. EYLEA [Suspect]
     Active Substance: AFLIBERCEPT
     Dosage: 2 MG, EVERY 12 WEEKS INTO LEFT EYE (STRENGTH: 2MG/0.05ML, FORMULATION: PFS GERRESHEIMER)
     Dates: start: 20220907, end: 20220907
  16. EYLEA [Suspect]
     Active Substance: AFLIBERCEPT
     Dosage: 2 MG, EVERY 12 WEEKS INTO LEFT EYE (STRENGTH: 2MG/0.05ML, FORMULATION: PFS GERRESHEIMER)
     Dates: start: 20221221, end: 20221221
  17. EYLEA [Suspect]
     Active Substance: AFLIBERCEPT
     Dosage: 2 MG, EVERY 12 WEEKS INTO LEFT EYE (STRENGTH: 2MG/0.05ML, FORMULATION: PFS GERRESHEIMER)
     Dates: start: 20230329, end: 20230329
  18. EYLEA [Suspect]
     Active Substance: AFLIBERCEPT
     Dosage: 2 MG, EVERY 12 WEEKS INTO LEFT EYE (STRENGTH: 2MG/0.05ML, FORMULATION: PFS GERRESHEIMER)
     Dates: start: 20230621, end: 20230621
  19. EYLEA [Suspect]
     Active Substance: AFLIBERCEPT
     Dosage: 2 MG, EVERY 8 WEEKS INTO LEFT EYE (STRENGTH: 2MG/0.05ML, FORMULATION: PFS GERRESHEIMER)
     Dates: start: 20230816, end: 20230816
  20. EYLEA [Suspect]
     Active Substance: AFLIBERCEPT
     Dosage: 2 MG, EVERY 8 WEEKS INTO LEFT EYE (STRENGTH: 2MG/0.05ML, FORMULATION: PFS GERRESHEIMER)
     Dates: start: 20231016, end: 20231016
  21. EYLEA [Suspect]
     Active Substance: AFLIBERCEPT
     Dosage: 2 MG, EVERY 8 WEEKS INTO LEFT EYE (STRENGTH: 2MG/0.05ML, FORMULATION: PFS GERRESHEIMER)
     Dates: start: 20231211, end: 20231211
  22. EYLEA [Suspect]
     Active Substance: AFLIBERCEPT
     Dosage: 2 MG, EVERY 8 WEEKS INTO LEFT EYE (STRENGTH: 2MG/0.05ML, FORMULATION: PFS GERRESHEIMER)
     Dates: start: 20240129, end: 20240129
  23. EYLEA [Suspect]
     Active Substance: AFLIBERCEPT
     Dosage: 2 MG, EVERY 8 WEEKS INTO LEFT EYE (STRENGTH: 2MG/0.05ML, FORMULATION: PFS GERRESHEIMER)
     Dates: start: 20240327, end: 20240327
  24. EYLEA [Suspect]
     Active Substance: AFLIBERCEPT
     Dosage: 2 MG, EVERY 8 WEEKS INTO LEFT EYE (STRENGTH: 2MG/0.05ML, FORMULATION: PFS GERRESHEIMER)
     Dates: start: 20240522
  25. HUMALOG [Concomitant]
     Active Substance: INSULIN LISPRO
     Indication: Type 1 diabetes mellitus
     Dosage: UNK
  26. ENALAPRIL MALEATE [Concomitant]
     Active Substance: ENALAPRIL MALEATE
     Indication: Product used for unknown indication
  27. LEXAPRO [Concomitant]
     Active Substance: ESCITALOPRAM OXALATE
     Indication: Product used for unknown indication
  28. VITAMIN B COMPLEX [Concomitant]
     Active Substance: CYANOCOBALAMIN\DEXPANTHENOL\NIACINAMIDE\PYRIDOXINE HYDROCHLORIDE\RIBOFLAVIN 5^-PHOSPHATE SODIUM\THIA
     Indication: Product used for unknown indication
  29. FISH OIL [Concomitant]
     Active Substance: FISH OIL
     Indication: Product used for unknown indication
  30. ARTIFICIAL TEARS (GLYCERIN\HYPROMELLOSES\POLYETHYLENE GLYCOL 400) [Concomitant]
     Active Substance: GLYCERIN\HYPROMELLOSES\POLYETHYLENE GLYCOL 400
     Indication: Product used for unknown indication
     Dosage: 1 GTT QDAY OU
  31. PNEUMOCOCCAL VACCINE POLYVALENT NOS [Concomitant]
     Active Substance: PNEUMOCOCCAL VACCINE POLYVALENT
     Indication: Product used for unknown indication
  32. COVID-19 VACCINE [Concomitant]
     Indication: Product used for unknown indication
  33. COENZYME Q10 [Concomitant]
     Active Substance: DIETARY SUPPLEMENT\UBIDECARENONE
     Indication: Product used for unknown indication
  34. VITAMIN D3 [Concomitant]
     Active Substance: CHOLECALCIFEROL
     Indication: Product used for unknown indication
  35. DIETARY SUPPLEMENT\HERBALS\MILK THISTLE [Concomitant]
     Active Substance: MILK THISTLE
     Indication: Product used for unknown indication
  36. PREVACID [Concomitant]
     Active Substance: LANSOPRAZOLE
     Indication: Product used for unknown indication
  37. ATORVASTATIN [Concomitant]
     Active Substance: ATORVASTATIN
     Indication: Product used for unknown indication
  38. SINEMET [Concomitant]
     Active Substance: CARBIDOPA\LEVODOPA
     Indication: Product used for unknown indication
  39. LIPITOR [Concomitant]
     Active Substance: ATORVASTATIN CALCIUM
     Indication: Product used for unknown indication

REACTIONS (16)
  - Retinal oedema [Recovered/Resolved]
  - Visual acuity reduced transiently [Recovered/Resolved]
  - Metamorphopsia [Unknown]
  - Visual impairment [Unknown]
  - Pyrexia [Unknown]
  - Cough [Unknown]
  - Sneezing [Unknown]
  - Rhinorrhoea [Unknown]
  - Myalgia [Unknown]
  - Arthralgia [Unknown]
  - Intraocular pressure decreased [Recovered/Resolved]
  - Dry eye [Unknown]
  - Intraocular pressure increased [Recovered/Resolved]
  - Vision blurred [Unknown]
  - Vitreous floaters [Unknown]
  - Drug ineffective [Not Recovered/Not Resolved]

NARRATIVE: CASE EVENT DATE: 20191226
